FAERS Safety Report 24618495 (Version 1)
Quarter: 2024Q4

REPORT INFORMATION
  Report Type: Report from Study
  Country: ZA (occurrence: ZA)
  Receive Date: 20241114
  Receipt Date: 20241114
  Transmission Date: 20250115
  Serious: Yes (Hospitalization, Other)
  Sender: ALEXION PHARMACEUTICALS
  Company Number: ZA-AstraZeneca-CH-00743036A

PATIENT
  Age: 47 Year

DRUGS (12)
  1. DAPAGLIFLOZIN [Suspect]
     Active Substance: DAPAGLIFLOZIN
     Indication: Diabetes mellitus
     Dosage: 10 MILLIGRAM
  2. DAPAGLIFLOZIN [Suspect]
     Active Substance: DAPAGLIFLOZIN
     Dosage: 10 MILLIGRAM
  3. DAPAGLIFLOZIN [Suspect]
     Active Substance: DAPAGLIFLOZIN
     Dosage: 10 MILLIGRAM
  4. DAPAGLIFLOZIN [Suspect]
     Active Substance: DAPAGLIFLOZIN
     Dosage: 10 MILLIGRAM
  5. HYDRALAZINE HYDROCHLORIDE [Concomitant]
     Active Substance: HYDRALAZINE HYDROCHLORIDE
     Indication: Hypertension
     Dosage: 50 MILLIGRAM
  6. HYDRALAZINE HYDROCHLORIDE [Concomitant]
     Active Substance: HYDRALAZINE HYDROCHLORIDE
     Dosage: 50 MILLIGRAM
  7. PROCHLORPERAZINE MALEATE [Concomitant]
     Active Substance: PROCHLORPERAZINE MALEATE
     Indication: Schizophrenia
     Dosage: 5 MILLIGRAM
  8. PROCHLORPERAZINE MALEATE [Concomitant]
     Active Substance: PROCHLORPERAZINE MALEATE
     Dosage: 5 MILLIGRAM
  9. VALACYCLOVIR HYDROCHLORIDE [Concomitant]
     Active Substance: VALACYCLOVIR HYDROCHLORIDE
     Indication: Pyrexia
     Dosage: 500 MILLIGRAM
  10. VALACYCLOVIR HYDROCHLORIDE [Concomitant]
     Active Substance: VALACYCLOVIR HYDROCHLORIDE
     Dosage: 500 MILLIGRAM
  11. PREGABALIN [Concomitant]
     Active Substance: PREGABALIN
     Indication: Epilepsy
     Dosage: 75 MILLIGRAM
  12. PREGABALIN [Concomitant]
     Active Substance: PREGABALIN
     Dosage: 75 MILLIGRAM

REACTIONS (1)
  - Renal impairment [Unknown]
